FAERS Safety Report 10993239 (Version 2)
Quarter: 2015Q2

REPORT INFORMATION
  Report Type: Spontaneous
  Country: US (occurrence: US)
  Receive Date: 20150407
  Receipt Date: 20150519
  Transmission Date: 20150821
  Serious: Yes (Other)
  Sender: FDA-Public Use
  Company Number: US-PFIZER INC-2015119598

PATIENT
  Age: 67 Year
  Sex: Female

DRUGS (1)
  1. GABAPENTIN. [Suspect]
     Active Substance: GABAPENTIN
     Dosage: 100 MG, 2X/DAY
     Dates: start: 20140512

REACTIONS (7)
  - Stress [Unknown]
  - Inflammation [Unknown]
  - Bladder spasm [Unknown]
  - Spinal column stenosis [Unknown]
  - Cardiac failure congestive [Unknown]
  - Neurogenic bladder [Unknown]
  - Anxiety [Unknown]
